FAERS Safety Report 23097623 (Version 2)
Quarter: 2023Q4

REPORT INFORMATION
  Report Type: Report from Study
  Country: PT (occurrence: PT)
  Receive Date: 20231023
  Receipt Date: 20231109
  Transmission Date: 20240109
  Serious: Yes (Other)
  Sender: FDA-Public Use
  Company Number: PT-TEVA-2023-PT-2937671

PATIENT
  Age: 43 Year
  Sex: Female

DRUGS (17)
  1. AJOVY [Suspect]
     Active Substance: FREMANEZUMAB-VFRM
     Indication: Migraine
     Dosage: INJECTION LOCATION- ABDOMEN
     Route: 065
     Dates: start: 20220117
  2. AJOVY [Suspect]
     Active Substance: FREMANEZUMAB-VFRM
     Route: 065
     Dates: start: 20210107
  3. OMALIZUMAB [Concomitant]
     Active Substance: OMALIZUMAB
     Indication: Urticaria chronic
     Dosage: 1 DOSE, VIAL
     Route: 058
     Dates: start: 202202
  4. OMALIZUMAB [Concomitant]
     Active Substance: OMALIZUMAB
     Dosage: 10 MILLIGRAM DAILY;
     Route: 058
     Dates: start: 20220131
  5. CETIRIZINE [Concomitant]
     Active Substance: CETIRIZINE HYDROCHLORIDE
     Indication: Urticaria chronic
     Dosage: 1 DOSE
     Route: 048
  6. clonazpeam [Concomitant]
     Indication: Insomnia
     Dosage: .5 MILLIGRAM DAILY;
     Route: 048
     Dates: start: 2020
  7. CASENLAX [Concomitant]
     Indication: Constipation
     Dosage: 1 TBSP
     Route: 048
  8. BISACODYL [Concomitant]
     Active Substance: BISACODYL
     Indication: Constipation
     Dosage: 1 DOSE
     Route: 048
     Dates: start: 20220214
  9. BISACODYL [Concomitant]
     Active Substance: BISACODYL
     Dosage: 10 MILLIGRAM DAILY;
     Route: 048
     Dates: start: 20230629
  10. POLYETHYLENE GLYCOLS [Concomitant]
     Active Substance: POLYETHYLENE GLYCOLS
     Indication: Constipation
     Dosage: 400 MILLIGRAM DAILY;
     Route: 048
     Dates: start: 202203
  11. MELILAX [Concomitant]
     Indication: Constipation
     Dosage: 1 SUPPOSITORY, PRN
     Route: 054
     Dates: start: 202203
  12. ZOLMITRIPTAN [Concomitant]
     Active Substance: ZOLMITRIPTAN
     Indication: Migraine prophylaxis
     Dosage: PRN
     Route: 048
  13. LACTULOSE [Concomitant]
     Active Substance: LACTULOSE
     Indication: Constipation
     Dosage: PRN
     Route: 048
     Dates: start: 20220801
  14. DULAGLUTIDE [Concomitant]
     Active Substance: DULAGLUTIDE
     Indication: Obesity
     Dosage: .2143 MILLIGRAM DAILY;
     Route: 058
     Dates: start: 20220902
  15. QUETIAPINE [Concomitant]
     Active Substance: QUETIAPINE
     Indication: Insomnia
     Dosage: 100 MILLIGRAM DAILY;
     Route: 048
     Dates: start: 202210
  16. LANSOPRAZOLE [Concomitant]
     Active Substance: LANSOPRAZOLE
     Indication: Gastrooesophageal reflux disease
     Dosage: 30 MILLIGRAM DAILY;
     Route: 048
     Dates: start: 202210
  17. SENE [Concomitant]
     Indication: Product used for unknown indication
     Dosage: 12 MILLIGRAM DAILY;
     Route: 048
     Dates: start: 20230629

REACTIONS (2)
  - Abortion spontaneous [Recovered/Resolved]
  - Maternal exposure during pregnancy [Unknown]

NARRATIVE: CASE EVENT DATE: 20230825
